FAERS Safety Report 7150344-8 (Version None)
Quarter: 2010Q4

REPORT INFORMATION
  Report Type: 
  Country: None (occurrence: None)
  Receive Date: 20101207
  Receipt Date: 20101207
  Transmission Date: 20110411
  Serious: No
  Sender: FDA-Public Use
  Company Number: None

PATIENT
  Sex: Male
  Weight: 72.5755 kg

DRUGS (2)
  1. UREALAC TOPICAL SUSPENSION 50% UREA [Suspect]
     Indication: DRY SKIN
     Dosage: DAILY RUB IN TO AFFECTED AREA
     Dates: start: 20091224, end: 20101206
  2. UREALAC TOPICAL SUSPENSION 50% UREA [Suspect]
     Indication: SKIN DISORDER
     Dosage: DAILY RUB IN TO AFFECTED AREA
     Dates: start: 20091224, end: 20101206

REACTIONS (2)
  - PRODUCT DEPOSIT [None]
  - PRODUCT QUALITY ISSUE [None]
